FAERS Safety Report 9734555 (Version 1)
Quarter: 2013Q4

REPORT INFORMATION
  Report Type: Spontaneous
  Country: US (occurrence: US)
  Receive Date: 20131206
  Receipt Date: 20131206
  Transmission Date: 20140711
  Serious: Yes (Hospitalization)
  Sender: FDA-Public Use
  Company Number: US-IPSEN BIOPHARMACEUTICALS, INC.-2013-5303

PATIENT
  Sex: Male

DRUGS (4)
  1. SOMATULINE DEPOT INJECTION (90MG) [Suspect]
     Indication: ACROMEGALY
     Dosage: 90 MG
     Route: 058
  2. PAIN KILLERS [Suspect]
     Indication: PRODUCT USED FOR UNKNOWN INDICATION
     Dosage: NOT REPORTED
     Route: 065
  3. CORTISOL [Concomitant]
     Indication: PRODUCT USED FOR UNKNOWN INDICATION
     Dosage: 2 TABLETS DAILY
  4. TESTOSTERONE [Concomitant]
     Indication: PRODUCT USED FOR UNKNOWN INDICATION
     Dosage: NOT REPORTED
     Route: 051

REACTIONS (14)
  - Gallbladder disorder [Unknown]
  - Lung disorder [Unknown]
  - Cardiovascular disorder [Unknown]
  - Hypoaesthesia [Unknown]
  - Joint lock [Unknown]
  - Gastrointestinal disorder [Unknown]
  - Arthralgia [Unknown]
  - Musculoskeletal pain [Unknown]
  - Malocclusion [Unknown]
  - Libido decreased [Unknown]
  - Injection site haemorrhage [Unknown]
  - Gastrointestinal pain [Unknown]
  - Fatigue [Unknown]
  - Injection site pain [Unknown]
